FAERS Safety Report 5718635-2 (Version None)
Quarter: 2008Q2

REPORT INFORMATION
  Report Type: 
  Country: None (occurrence: None)
  Receive Date: 20080425
  Receipt Date: 20080417
  Transmission Date: 20081010
  Serious: Yes (Hospitalization)
  Sender: FDA-Public Use
  Company Number: FR-NOVOPROD-274552

PATIENT
  Age: 71 Year
  Sex: Male

DRUGS (4)
  1. NOVONORM [Suspect]
     Indication: DIABETES MELLITUS
     Dates: start: 20070925, end: 20071031
  2. DIAMICRON [Concomitant]
     Route: 048
  3. OGAST [Concomitant]
  4. OMEPRAZOLE [Concomitant]
     Dates: start: 20071225, end: 20081227

REACTIONS (2)
  - DERMATITIS [None]
  - PRURITUS [None]
